FAERS Safety Report 23173137 (Version 1)
Quarter: 2023Q4

REPORT INFORMATION
  Report Type: Spontaneous
  Country: US (occurrence: US)
  Receive Date: 20231111
  Receipt Date: 20231111
  Transmission Date: 20240110
  Serious: Yes (Hospitalization)
  Sender: FDA-Public Use
  Company Number: US-TEVA-2023-US-2872865

PATIENT
  Age: 18 Year
  Sex: Male

DRUGS (2)
  1. CYCLOSPORINE [Suspect]
     Active Substance: CYCLOSPORINE
     Indication: Product used for unknown indication
     Dosage: 100 MILLIGRAM DAILY;
     Route: 065
     Dates: start: 202302
  2. CYCLOSPORINE [Suspect]
     Active Substance: CYCLOSPORINE
     Dosage: 75 MILLIGRAM DAILY; 75 MILLIGRAM
     Route: 065

REACTIONS (4)
  - Ear infection [Not Recovered/Not Resolved]
  - Weight increased [Unknown]
  - Drug level increased [Unknown]
  - Product dispensing error [Unknown]
